FAERS Safety Report 22390135 (Version 7)
Quarter: 2023Q4

REPORT INFORMATION
  Report Type: Spontaneous
  Country: US (occurrence: US)
  Receive Date: 20230531
  Receipt Date: 20231228
  Transmission Date: 20240110
  Serious: No
  Sender: FDA-Public Use
  Company Number: US-PFIZER INC-PV202300091410

PATIENT
  Age: 81 Year
  Sex: Female

DRUGS (6)
  1. BRAFTOVI [Suspect]
     Active Substance: ENCORAFENIB
     Indication: Malignant melanoma
     Dosage: 375 MG, DAILY; (75MG 5 CAPSULES PO QD)
     Route: 048
  2. BRAFTOVI [Suspect]
     Active Substance: ENCORAFENIB
     Dosage: 75 MG
  3. MEKTOVI [Suspect]
     Active Substance: BINIMETINIB
     Indication: Malignant melanoma
     Dosage: 30 MG, 2X/DAY; (15 MG 2 TAB PO BID)
     Route: 048
  4. MEKTOVI [Suspect]
     Active Substance: BINIMETINIB
     Dosage: 45 MG, DAILY (3 A DAY)
  5. MEKTOVI [Suspect]
     Active Substance: BINIMETINIB
     Dosage: 15 MG
  6. MEKTOVI [Suspect]
     Active Substance: BINIMETINIB
     Dosage: MEKTOVI ONE TWICE A DAY

REACTIONS (9)
  - Off label use [Unknown]
  - Intentional product misuse [Unknown]
  - Product use complaint [Unknown]
  - Skin discolouration [Unknown]
  - Hypertension [Unknown]
  - Hypersensitivity [Not Recovered/Not Resolved]
  - Alopecia [Recovering/Resolving]
  - Osteoarthritis [Unknown]
  - Neoplasm progression [Unknown]

NARRATIVE: CASE EVENT DATE: 20230601
